FAERS Safety Report 5340987-6 (Version None)
Quarter: 2007Q2

REPORT INFORMATION
  Report Type: 
  Country: None (occurrence: None)
  Receive Date: 20070405
  Receipt Date: 20070123
  Transmission Date: 20071010
  Serious: No
  Sender: FDA-Public Use
  Company Number: US200701004657

PATIENT
  Age: 64 Year
  Sex: Female

DRUGS (6)
  1. ZYPREXA [Suspect]
     Indication: BIPOLAR DISORDER
     Dates: start: 20010101
  2. CYMBALTA [Suspect]
     Indication: MANIA
     Dates: start: 20050101
  3. DEPAKOTE [Concomitant]
  4. DIAZIDE (GLICLAZIDE) [Concomitant]
  5. NEXIUM [Concomitant]
  6. DESONIDE [Concomitant]

REACTIONS (3)
  - IRRITABILITY [None]
  - RASH [None]
  - SOMNOLENCE [None]
